FAERS Safety Report 12287470 (Version 1)
Quarter: 2016Q2

REPORT INFORMATION
  Report Type: Not Available
  Country: ES (occurrence: ES)
  Receive Date: 20160420
  Receipt Date: 20160420
  Transmission Date: 20160815
  Serious: Yes (Hospitalization)
  Sender: FDA-Public Use
  Company Number: ES-ANIPHARMA-2016-ES-000004

PATIENT
  Age: 39 Year
  Sex: Female

DRUGS (4)
  1. LACTULOSE (NON-SPECIFIC) [Concomitant]
     Active Substance: LACTULOSE
  2. LORMETACEPAM [Concomitant]
  3. VALPROIC ACID (NON-SPECIFIC) [Suspect]
     Active Substance: VALPROIC ACID
     Dosage: 500 MG EVERY 12 HOUR
  4. CLONAZEPAM. [Concomitant]
     Active Substance: CLONAZEPAM
     Dosage: 5 MG DAILY

REACTIONS (1)
  - Pulmonary eosinophilia [Recovered/Resolved]
